FAERS Safety Report 4501047-7 (Version None)
Quarter: 2004Q4

REPORT INFORMATION
  Report Type: 
  Country: None (occurrence: None)
  Receive Date: 20041115
  Receipt Date: 20040927
  Transmission Date: 20050328
  Serious: Yes (Hospitalization, Other)
  Sender: FDA-Public Use
  Company Number: GB-BRISTOL-MYERS SQUIBB COMPANY-12712972

PATIENT
  Age: 75 Year
  Sex: Male
  Weight: 65 kg

DRUGS (7)
  1. SINEMET [Suspect]
     Indication: PARKINSON'S DISEASE
     Route: 048
     Dates: start: 20021219
  2. SELEGILINE HCL [Interacting]
     Indication: PARKINSON'S DISEASE
     Dates: start: 20040811
  3. LACTULOSE [Concomitant]
     Route: 048
  4. LANSOPRAZOLE [Concomitant]
     Route: 048
     Dates: start: 20040915
  5. LORMETAZEPAM [Concomitant]
     Dosage: DOSE VALUE:  0.5-1.0 MG
     Route: 048
     Dates: start: 20040909
  6. SENNA [Concomitant]
     Route: 048
  7. PIRITON [Concomitant]
     Indication: HEAT RASH
     Route: 048
     Dates: start: 20040913, end: 20040924

REACTIONS (10)
  - DIVERTICULUM OESOPHAGEAL [None]
  - DRUG INTERACTION [None]
  - DUODENAL ULCER [None]
  - GASTRIC OUTLET OBSTRUCTION [None]
  - HAEMATEMESIS [None]
  - HEAT RASH [None]
  - HIATUS HERNIA [None]
  - MELAENA [None]
  - NAUSEA [None]
  - VOMITING [None]
